FAERS Safety Report 12927861 (Version 3)
Quarter: 2018Q4

REPORT INFORMATION
  Report Type: Spontaneous
  Country: TW (occurrence: TW)
  Receive Date: 20161110
  Receipt Date: 20181123
  Transmission Date: 20190204
  Serious: No
  Sender: FDA-Public Use
  Company Number: TW-LUPIN PHARMACEUTICALS INC.-2016-03911

PATIENT

DRUGS (6)
  1. CLOZAPINE. [Suspect]
     Active Substance: CLOZAPINE
     Indication: SCHIZOPHRENIA
     Dosage: 300 MG, QD
     Route: 065
  2. SULPIRIDE [Interacting]
     Active Substance: SULPIRIDE
     Indication: SCHIZOPHRENIA
     Dosage: 800 MG, QD
     Route: 065
  3. SULPIRIDE [Interacting]
     Active Substance: SULPIRIDE
     Indication: PSYCHOTIC DISORDER
  4. METFORMIN [Interacting]
     Active Substance: METFORMIN HYDROCHLORIDE
     Dosage: 500 MG, UNK
     Route: 065
  5. METFORMIN [Suspect]
     Active Substance: METFORMIN HYDROCHLORIDE
     Indication: METABOLIC SYNDROME
     Dosage: 500 MG, QD
     Route: 065
  6. CLOZAPINE. [Suspect]
     Active Substance: CLOZAPINE
     Indication: PSYCHOTIC DISORDER

REACTIONS (3)
  - Metabolic syndrome [Unknown]
  - Dystonia [Recovered/Resolved]
  - Drug interaction [Unknown]
